FAERS Safety Report 8555568-0 (Version None)
Quarter: 2012Q3

REPORT INFORMATION
  Report Type: 
  Country: None (occurrence: None)
  Receive Date: 20120731
  Receipt Date: 20110930
  Transmission Date: 20120928
  Serious: No
  Sender: FDA-Public Use
  Company Number: US-ASTRAZENECA-2010SE61311

PATIENT
  Age: 40 Year
  Sex: Female

DRUGS (9)
  1. SEROQUEL [Suspect]
     Route: 048
  2. TRAZODONE HYDROCHLORIDE [Concomitant]
  3. SEROQUEL [Suspect]
     Route: 048
  4. DIAMOX [Concomitant]
  5. CLARIL [Concomitant]
  6. ZANAFLEX [Concomitant]
  7. PROZAC [Concomitant]
  8. SEROQUEL [Suspect]
     Indication: MIGRAINE
     Dosage: ADDITIONAL 150 MG
     Route: 048
  9. KLONOPIN [Concomitant]

REACTIONS (5)
  - HEADACHE [None]
  - NERVOUS SYSTEM DISORDER [None]
  - MIGRAINE [None]
  - BRAIN OEDEMA [None]
  - OFF LABEL USE [None]
